FAERS Safety Report 7991822-9 (Version None)
Quarter: 2011Q4

REPORT INFORMATION
  Report Type: 
  Country: None (occurrence: None)
  Receive Date: 20111219
  Receipt Date: 20111214
  Transmission Date: 20120403
  Serious: No
  Sender: FDA-Public Use
  Company Number: US-PFIZER INC-2011305381

PATIENT
  Sex: Female
  Weight: 72.562 kg

DRUGS (15)
  1. ACETYLSALICYLIC ACID [Suspect]
     Indication: ROTATOR CUFF SYNDROME
  2. CHONDROITIN/GLUCOSAMINE [Concomitant]
     Dosage: UNK
  3. IBUPROFEN (ADVIL) [Suspect]
     Indication: SPINAL COLUMN STENOSIS
     Dosage: THREE TABLETS, DAILY
     Route: 048
     Dates: start: 20111101, end: 20111213
  4. CALCIUM [Concomitant]
     Dosage: UNK
  5. IBUPROFEN (ADVIL) [Suspect]
     Indication: SPONDYLITIS
  6. ACETYLSALICYLIC ACID [Suspect]
     Indication: ARTHRITIS
  7. ACETAMINOPHEN [Suspect]
     Indication: SPINAL COLUMN STENOSIS
     Dosage: UNK
  8. ACETAMINOPHEN [Suspect]
     Indication: ARTHRITIS
  9. IBUPROFEN (ADVIL) [Suspect]
     Indication: ROTATOR CUFF SYNDROME
  10. ACETAMINOPHEN [Suspect]
     Indication: ROTATOR CUFF SYNDROME
  11. ACETYLSALICYLIC ACID [Suspect]
     Indication: SPONDYLITIS
  12. IBUPROFEN (ADVIL) [Suspect]
     Indication: ARTHRITIS
  13. ACETYLSALICYLIC ACID SRT [Suspect]
     Indication: SPINAL COLUMN STENOSIS
     Dosage: UNK
  14. ACETAMINOPHEN [Suspect]
     Indication: SPONDYLITIS
  15. MULTI-VITAMINS [Concomitant]
     Dosage: UNK

REACTIONS (4)
  - EYE PAIN [None]
  - INTRAOCULAR PRESSURE INCREASED [None]
  - DRUG INEFFECTIVE [None]
  - CONTUSION [None]
